FAERS Safety Report 10823039 (Version 1)
Quarter: 2015Q1

REPORT INFORMATION
  Report Type: Spontaneous
  Country: US (occurrence: None)
  Receive Date: 20150218
  Receipt Date: 20150218
  Transmission Date: 20150721
  Serious: Yes (Other)
  Sender: FDA-Public Use
  Company Number: None

PATIENT
  Age: 44 Year
  Sex: Female

DRUGS (1)
  1. VIREAD [Suspect]
     Active Substance: TENOFOVIR DISOPROXIL FUMARATE
     Indication: CHRONIC HEPATITIS B
     Dosage: STRENGTH: 300, DOSE FORM: ORAL, FREQUENCY: QD, ROUTE: ORAL 047
     Route: 048
     Dates: start: 201401, end: 201502

REACTIONS (1)
  - Hair colour changes [None]

NARRATIVE: CASE EVENT DATE: 20150215
